FAERS Safety Report 12624821 (Version 3)
Quarter: 2016Q3

REPORT INFORMATION
  Report Type: Report from Study
  Country: BR (occurrence: BR)
  Receive Date: 20160805
  Receipt Date: 20160901
  Transmission Date: 20161109
  Serious: Yes (Other)
  Sender: FDA-Public Use
  Company Number: PHHY2016BR107505

PATIENT
  Age: 7 Year
  Sex: Male
  Weight: 18 kg

DRUGS (6)
  1. TEGRETOL [Suspect]
     Active Substance: CARBAMAZEPINE
     Indication: SEIZURE
     Dosage: 1 ML, QD
     Route: 048
  2. TEGRETOL CR [Suspect]
     Active Substance: CARBAMAZEPINE
     Dosage: 1.5 DF, (HALF TABLET AFTER BREAKFAST AND 01 WHOLE TABLET AFTER DINNER)
     Route: 048
     Dates: start: 20160715
  3. AVAMYS [Concomitant]
     Active Substance: FLUTICASONE FUROATE
     Indication: PRODUCT USED FOR UNKNOWN INDICATION
     Dosage: 1 DF, QHS (FROM 3 MONTHS AGO)
     Route: 045
  4. TEGRETOL CR [Suspect]
     Active Substance: CARBAMAZEPINE
     Indication: SEIZURE
     Dosage: 0.5 DF, QHS
     Route: 048
  5. TEGRETOL CR [Suspect]
     Active Substance: CARBAMAZEPINE
     Dosage: 0.5 DF, BID (HALF TABLET IN THE MORNING AND HALF TABLET IN THE EVENING FOR THE REST OF HIS LIFE)
     Route: 048
  6. TEGRETOL CR [Suspect]
     Active Substance: CARBAMAZEPINE
     Dosage: 1.5 DF, QD (0.5 DF A DAY + 1 DF AT NIGHT)
     Route: 048

REACTIONS (1)
  - Seizure [Recovered/Resolved]

NARRATIVE: CASE EVENT DATE: 201507
